FAERS Safety Report 5669028-8 (Version None)
Quarter: 2008Q1

REPORT INFORMATION
  Report Type: 
  Country: None (occurrence: None)
  Receive Date: 20080317
  Receipt Date: 20070627
  Transmission Date: 20080703
  Serious: Yes (Hospitalization)
  Sender: FDA-Public Use
  Company Number: JP-ASTRAZENECA-2006AP03905

PATIENT
  Age: 44 Year
  Sex: Female

DRUGS (2)
  1. NOLVADEX [Suspect]
     Indication: BREAST CANCER
     Route: 048
     Dates: start: 20060228, end: 20060706
  2. RADIATION THERAPY [Suspect]
     Indication: BREAST CANCER
     Dosage: TOTAL 55 GY
     Dates: start: 20060210, end: 20060320

REACTIONS (1)
  - CRYPTOGENIC ORGANISING PNEUMONIA [None]
